FAERS Safety Report 4320437-9 (Version None)
Quarter: 2004Q1

REPORT INFORMATION
  Report Type: 
  Country: None (occurrence: None)
  Receive Date: 20040319
  Receipt Date: 20040319
  Transmission Date: 20041129
  Serious: Yes (Death, Life-Threatening, Hospitalization)
  Sender: FDA-Public Use
  Company Number: None

PATIENT
  Age: 79 Year
  Sex: Male
  Weight: 81.6475 kg

DRUGS (18)
  1. ESTRAMUSTINE 400 MG PO TID PHARMACIA [Suspect]
     Indication: PROSTATIC DISORDER
     Dosage: 400 MG TID (3DAYS/ ORAL
     Route: 048
     Dates: start: 20031216, end: 20040310
  2. PACLITAXEL [Suspect]
     Indication: PROSTATIC DISORDER
     Dosage: 90 MG/M2 DAYS 2,9 AND 16 INTRAVENOUS
     Route: 042
     Dates: start: 20031217, end: 20040225
  3. PACLITAXEL [Suspect]
  4. LEVOFLOXACINE [Concomitant]
  5. PEPCID [Concomitant]
  6. LOVENOX [Concomitant]
  7. CEFEPIME [Concomitant]
  8. NACL .9% AND NSS [Concomitant]
  9. CELEBREX [Concomitant]
  10. COUMADIN [Concomitant]
  11. DECADRON [Concomitant]
  12. BENADRYL [Concomitant]
  13. ZANTAC [Concomitant]
  14. ZOMETA [Concomitant]
  15. ATENOLOL [Concomitant]
  16. HYTRIN [Concomitant]
  17. PRAVACHOL [Concomitant]
  18. GLUCOSAMINE CHONDROITIN [Concomitant]

REACTIONS (12)
  - ASTHENIA [None]
  - BLOOD PRESSURE DECREASED [None]
  - CARDIO-RESPIRATORY ARREST [None]
  - DIARRHOEA [None]
  - DYSPNOEA [None]
  - LOSS OF CONSCIOUSNESS [None]
  - OEDEMA PERIPHERAL [None]
  - PHARYNGOLARYNGEAL PAIN [None]
  - PULMONARY EMBOLISM [None]
  - RESTLESSNESS [None]
  - SEPSIS [None]
  - SYNCOPE [None]
